FAERS Safety Report 8970110 (Version 1)
Quarter: 2012Q4

REPORT INFORMATION
  Report Type: 
  Country: US (occurrence: US)
  Receive Date: 20121218
  Receipt Date: 20121218
  Transmission Date: 20130627
  Serious: No
  Sender: FDA-Public Use
  Company Number: US-ABBOTT-12P-163-0958631-00

PATIENT
  Sex: Female

DRUGS (1)
  1. PROMETRIUM [Suspect]
     Indication: PRODUCT USED FOR UNKNOWN INDICATION
     Dates: start: 201204

REACTIONS (5)
  - Suspected counterfeit product [Unknown]
  - Product tampering [Unknown]
  - Drug diversion [Unknown]
  - Dysgeusia [Unknown]
  - Product physical issue [Unknown]
